FAERS Safety Report 13135668 (Version 2)
Quarter: 2017Q1

REPORT INFORMATION
  Report Type: Spontaneous
  Country: NL (occurrence: NL)
  Receive Date: 20170120
  Receipt Date: 20170202
  Transmission Date: 20170428
  Serious: Yes (Hospitalization)
  Sender: FDA-Public Use
  Company Number: NL-PFIZER INC-2017025350

PATIENT
  Age: 54 Year
  Sex: Female
  Weight: 63 kg

DRUGS (4)
  1. LYRICA [Suspect]
     Active Substance: PREGABALIN
     Indication: NEURALGIA
     Dosage: 75 MG, 2X/DAY
     Route: 048
     Dates: start: 20161212, end: 20161218
  2. OXYCODON [Interacting]
     Active Substance: OXYCODONE
     Dosage: 10 MG, 2X/DAY
     Route: 048
     Dates: start: 20161202
  3. OXYCODON [Interacting]
     Active Substance: OXYCODONE
     Indication: NEURALGIA
     Dosage: 5 MG, EVERY 4 HRS
     Route: 048
     Dates: start: 20161130, end: 20161217
  4. PARACETAMOL HTP [Concomitant]
     Dosage: 500 MG, 4X/DAY
     Route: 048
     Dates: start: 20161122

REACTIONS (2)
  - Potentiating drug interaction [Recovered/Resolved]
  - Seizure [Recovered/Resolved]

NARRATIVE: CASE EVENT DATE: 20161219
